FAERS Safety Report 24696624 (Version 1)
Quarter: 2024Q4

REPORT INFORMATION
  Report Type: Spontaneous
  Country: DE (occurrence: DE)
  Receive Date: 20241204
  Receipt Date: 20241204
  Transmission Date: 20250115
  Serious: Yes (Life-Threatening, Other)
  Sender: TEVA
  Company Number: DE-DCGMA-24204205

PATIENT
  Age: 10 Year

DRUGS (2)
  1. CLARITHROMYCIN [Suspect]
     Active Substance: CLARITHROMYCIN
     Indication: Pertussis
     Dosage: 2 X 500MG
     Route: 048
     Dates: start: 20240904, end: 20240905
  2. ERYTHROMYCIN ESTOLATE [Suspect]
     Active Substance: ERYTHROMYCIN ESTOLATE
     Indication: Pertussis
     Dosage: INFECTOMYCIN 400 JUICE 2 X 1000MG
     Route: 048
     Dates: start: 20240905, end: 20240918

REACTIONS (2)
  - Cholestasis [Recovered/Resolved]
  - Hepatitis [Recovered/Resolved]

NARRATIVE: CASE EVENT DATE: 20240912
